FAERS Safety Report 16892398 (Version 1)
Quarter: 2019Q4

REPORT INFORMATION
  Report Type: Spontaneous
  Country: ES (occurrence: ES)
  Receive Date: 20191007
  Receipt Date: 20191007
  Transmission Date: 20200122
  Serious: Yes (Other)
  Sender: FDA-Public Use
  Company Number: ES-PURDUE PHARMA-GBR-2019-0071274

PATIENT
  Age: 81 Year
  Sex: Male

DRUGS (1)
  1. MST CONTINUS [Suspect]
     Active Substance: MORPHINE SULFATE
     Indication: PAIN
     Dosage: 10 MG, DAILY
     Route: 048
     Dates: start: 201909, end: 20190904

REACTIONS (5)
  - Hallucination, visual [Unknown]
  - Somnolence [Unknown]
  - Myoclonus [Unknown]
  - Hallucination, auditory [Unknown]
  - Drug dose titration not performed [Recovered/Resolved]

NARRATIVE: CASE EVENT DATE: 201909
